FAERS Safety Report 10084540 (Version 1)
Quarter: 2014Q2

REPORT INFORMATION
  Report Type: Spontaneous
  Country: US (occurrence: US)
  Receive Date: 20140417
  Receipt Date: 20140417
  Transmission Date: 20141212
  Serious: No
  Sender: FDA-Public Use
  Company Number: US-PFIZER INC-2014104022

PATIENT
  Age: 63 Year
  Sex: Female

DRUGS (1)
  1. LATANOPROST [Suspect]
     Dosage: ONE DROP IN EACH EYE AT BED TIME DAILY
     Route: 047

REACTIONS (2)
  - Eye irritation [Recovering/Resolving]
  - Product quality issue [Unknown]
